FAERS Safety Report 9260625 (Version 1)
Quarter: 2013Q2

REPORT INFORMATION
  Report Type: Report from Study
  Country: US (occurrence: US)
  Receive Date: 20130429
  Receipt Date: 20130429
  Transmission Date: 20140414
  Serious: Yes (Hospitalization)
  Sender: FDA-Public Use
  Company Number: US-BRISTOL-MYERS SQUIBB COMPANY-18803791

PATIENT
  Age: 35 Year
  Sex: Female
  Weight: 99.33 kg

DRUGS (1)
  1. IPILIMUMAB [Suspect]
     Indication: MALIGNANT MELANOMA
     Dosage: LAST ADMINISTERED DATE:09APR2013?TOTAL DOSE ADMINISTERED DT:993MG?COURSES:3
     Route: 042
     Dates: start: 20130226

REACTIONS (3)
  - Peripheral motor neuropathy [Recovered/Resolved]
  - Hyperthyroidism [Not Recovered/Not Resolved]
  - Sinus tachycardia [Not Recovered/Not Resolved]
